FAERS Safety Report 25395983 (Version 1)
Quarter: 2025Q2

REPORT INFORMATION
  Report Type: Report from Study
  Country: US (occurrence: US)
  Receive Date: 20250604
  Receipt Date: 20250604
  Transmission Date: 20250716
  Serious: Yes (Other)
  Sender: ALEXION PHARMACEUTICALS
  Company Number: US-AstraZeneca-CH-00818042A

PATIENT
  Age: 82 Year
  Weight: 63.492 kg

DRUGS (10)
  1. OSIMERTINIB [Suspect]
     Active Substance: OSIMERTINIB
     Indication: Non-small cell lung cancer stage IV
     Dosage: 80 MILLIGRAM, QD
  2. CRESTOR [Concomitant]
     Active Substance: ROSUVASTATIN CALCIUM
     Dosage: 20 MILLIGRAM, QD
  3. ALBUTEROL [Concomitant]
     Active Substance: ALBUTEROL
     Indication: Wheezing
  4. CALCIUM\CHOLECALCIFEROL [Concomitant]
     Active Substance: CALCIUM\CHOLECALCIFEROL
  5. TESSALON [Concomitant]
     Active Substance: BENZONATATE
     Route: 065
  6. ASPIRIN [Concomitant]
     Active Substance: ASPIRIN
     Dosage: 81 MILLIGRAM, QD
     Route: 065
  7. VITAMINS [Concomitant]
     Active Substance: VITAMINS
  8. NAMENDA [Concomitant]
     Active Substance: MEMANTINE HYDROCHLORIDE
  9. TYLENOL [Concomitant]
     Active Substance: ACETAMINOPHEN
     Route: 065
  10. PYRIDIUM [Concomitant]
     Active Substance: PHENAZOPYRIDINE
     Dosage: UNK, TID

REACTIONS (12)
  - Pollakiuria [Not Recovered/Not Resolved]
  - Dyspnoea [Unknown]
  - Amnesia [Unknown]
  - Cancer pain [Unknown]
  - Asthenia [Unknown]
  - Blood urea increased [Unknown]
  - Mass [Unknown]
  - Lymphadenopathy [Unknown]
  - Nodule [Unknown]
  - Dementia [Unknown]
  - Hypertension [Unknown]
  - Dyslipidaemia [Unknown]
